APPROVED DRUG PRODUCT: ZITHROMAX
Active Ingredient: AZITHROMYCIN
Strength: EQ 250MG BASE **Federal Register determination that product was not discontinued or withdrawn for safety or effectiveness reasons**
Dosage Form/Route: CAPSULE;ORAL
Application: N050670 | Product #001
Applicant: PFIZER CHEMICALS DIV PFIZER INC
Approved: Nov 1, 1991 | RLD: Yes | RS: No | Type: DISCN